FAERS Safety Report 25191524 (Version 2)
Quarter: 2025Q2

REPORT INFORMATION
  Report Type: Report from Study
  Country: GB (occurrence: GB)
  Receive Date: 20250414
  Receipt Date: 20250515
  Transmission Date: 20250717
  Serious: Yes (Life-Threatening, Other)
  Sender: SANDOZ
  Company Number: GB-SANDOZ-SDZ2023GB041628

PATIENT
  Sex: Male

DRUGS (1)
  1. OMNITROPE [Suspect]
     Active Substance: SOMATROPIN
     Indication: Hypopituitarism
     Dosage: 0.30 MG, QD
     Route: 058

REACTIONS (3)
  - Terminal state [Unknown]
  - Dementia with Lewy bodies [Unknown]
  - Product dose omission issue [Unknown]
